FAERS Safety Report 11521769 (Version 1)
Quarter: 2015Q3

REPORT INFORMATION
  Report Type: Spontaneous
  Country: US (occurrence: US)
  Receive Date: 20150918
  Receipt Date: 20150918
  Transmission Date: 20151125
  Serious: No
  Sender: FDA-Public Use
  Company Number: US-ROCHE-675115

PATIENT
  Age: 54 Year
  Sex: Female
  Weight: 83.9 kg

DRUGS (2)
  1. COPEGUS [Suspect]
     Active Substance: RIBAVIRIN
     Indication: HEPATITIS C
     Dosage: DIVIDED DOSES
     Route: 048
  2. PEGASYS [Suspect]
     Active Substance: PEGINTERFERON ALFA-2A
     Indication: HEPATITIS C
     Dosage: FRROM: PRE-FILLED SYRINGE
     Route: 058

REACTIONS (10)
  - Dyspepsia [Unknown]
  - Pruritus [Not Recovered/Not Resolved]
  - Nausea [Unknown]
  - Rash [Not Recovered/Not Resolved]
  - Crying [Unknown]
  - Rash papular [Not Recovered/Not Resolved]
  - Pyrexia [Recovering/Resolving]
  - Weight decreased [Unknown]
  - Vomiting [Unknown]
  - Irritability [Not Recovered/Not Resolved]

NARRATIVE: CASE EVENT DATE: 20091211
